FAERS Safety Report 9184278 (Version 1)
Quarter: 2012Q4

REPORT INFORMATION
  Report Type: 
  Country: US (occurrence: US)
  Receive Date: 20121031
  Receipt Date: 20121031
  Transmission Date: 20130627
  Serious: No
  Sender: FDA-Public Use
  Company Number: US-009507513-1210USA007421

PATIENT
  Age: 35 Year
  Sex: Female

DRUGS (5)
  1. SINGULAIR [Suspect]
     Indication: HYPERSENSITIVITY
     Dosage: 10 mg, qd
     Route: 048
     Dates: start: 200610
  2. CETIRIZINE HYDROCHLORIDE [Concomitant]
  3. PULMICORT [Concomitant]
     Dosage: UNK, prn
  4. RHINOCORT (BUDESONIDE) [Concomitant]
  5. NASONEX [Concomitant]

REACTIONS (1)
  - Lactose intolerance [Not Recovered/Not Resolved]
